FAERS Safety Report 14835690 (Version 1)
Quarter: 2018Q2

REPORT INFORMATION
  Report Type: Spontaneous
  Country: SE (occurrence: SE)
  Receive Date: 20180502
  Receipt Date: 20180502
  Transmission Date: 20180711
  Serious: Yes (Disabling)
  Sender: FDA-Public Use
  Company Number: SE-009507513-1804SWE011147

PATIENT
  Age: 60 Year
  Sex: Female

DRUGS (1)
  1. ZOCORD [Suspect]
     Active Substance: SIMVASTATIN
     Indication: BLOOD CHOLESTEROL INCREASED
     Dosage: UNK
     Dates: start: 200206

REACTIONS (1)
  - Balance disorder [Recovered/Resolved with Sequelae]

NARRATIVE: CASE EVENT DATE: 2002
